FAERS Safety Report 11330588 (Version 1)
Quarter: 2015Q3

REPORT INFORMATION
  Report Type: Spontaneous
  Country: US (occurrence: None)
  Receive Date: 20150730
  Receipt Date: 20150730
  Transmission Date: 20151125
  Serious: No
  Sender: FDA-Public Use
  Company Number: None

PATIENT
  Age: 46 Year
  Sex: Female

DRUGS (10)
  1. ELIQUIS [Suspect]
     Active Substance: APIXABAN
     Indication: PULMONARY EMBOLISM
     Dosage: 10MG  TWICE DAILY  TAKEN BY MOUTH
     Route: 048
     Dates: start: 20150311, end: 20150629
  2. BIOTIN [Concomitant]
     Active Substance: BIOTIN
  3. ELIQUIS [Suspect]
     Active Substance: APIXABAN
     Indication: DEEP VEIN THROMBOSIS
     Dosage: 10MG  TWICE DAILY  TAKEN BY MOUTH
     Route: 048
     Dates: start: 20150311, end: 20150629
  4. XARELTO [Suspect]
     Active Substance: RIVAROXABAN
     Indication: COAGULOPATHY
     Dosage: 20MG ONCE DAILY TAKEN BY MOUTH
     Route: 048
     Dates: start: 20140115, end: 20141101
  5. COUMADIN [Concomitant]
     Active Substance: WARFARIN SODIUM
  6. VITAMINS [Concomitant]
     Active Substance: VITAMINS
  7. VITAMIN B12 [Concomitant]
     Active Substance: CYANOCOBALAMIN
  8. CALTRATE [Concomitant]
     Active Substance: CALCIUM CARBONATE
  9. STUART PRENATAL VITAMINS [Concomitant]
  10. B6 [Concomitant]
     Active Substance: PYRIDOXINE HYDROCHLORIDE

REACTIONS (5)
  - Joint swelling [None]
  - Infarction [None]
  - Peripheral swelling [None]
  - Weight increased [None]
  - Nail disorder [None]

NARRATIVE: CASE EVENT DATE: 20150513
